FAERS Safety Report 23885213 (Version 2)
Quarter: 2024Q2

REPORT INFORMATION
  Report Type: Spontaneous
  Country: US (occurrence: US)
  Receive Date: 20240522
  Receipt Date: 20240531
  Transmission Date: 20240716
  Serious: No
  Sender: FDA-Public Use
  Company Number: US-ORGANON-O2403USA001472

PATIENT
  Age: 21 Year
  Sex: Female
  Weight: 70.295 kg

DRUGS (1)
  1. NEXPLANON [Suspect]
     Active Substance: ETONOGESTREL
     Indication: Contraception
     Dosage: 1 IMPLANT OF 68 MG (IN LEFT ARM)
     Route: 059
     Dates: start: 20240311, end: 20240311

REACTIONS (2)
  - Complication of device insertion [Recovered/Resolved]
  - Device malfunction [Unknown]

NARRATIVE: CASE EVENT DATE: 20240311
